FAERS Safety Report 7157940-2 (Version None)
Quarter: 2010Q4

REPORT INFORMATION
  Report Type: 
  Country: None (occurrence: None)
  Receive Date: 20101214
  Receipt Date: 20101202
  Transmission Date: 20110411
  Serious: Yes (Hospitalization, Other)
  Sender: FDA-Public Use
  Company Number: US-CELGENEUS-163-FK228-10120658

PATIENT
  Sex: Female
  Weight: 59 kg

DRUGS (12)
  1. ROMIDEPSIN [Suspect]
     Route: 051
     Dates: start: 20101201
  2. DECADRON [Concomitant]
     Route: 048
  3. COMPAZINE [Concomitant]
     Route: 048
  4. FLOVENT HFA [Concomitant]
     Route: 055
  5. COLACE [Concomitant]
     Route: 048
  6. SENOKOT [Concomitant]
     Dosage: 8.6-50MG
     Route: 048
  7. ATIVAN [Concomitant]
     Route: 048
  8. MORPHINE SULFATE [Concomitant]
     Route: 048
  9. ZOFRAN [Concomitant]
     Route: 048
  10. MILK OF MAGNESIA TAB [Concomitant]
     Route: 048
  11. BENEFIBER PLUS CALCIUM [Concomitant]
     Dosage: 3G-300MG/8.8G
     Route: 048
  12. NASACORT AQ [Concomitant]
     Route: 045

REACTIONS (2)
  - FALL [None]
  - MENTAL STATUS CHANGES [None]
